FAERS Safety Report 4918595-8 (Version None)
Quarter: 2006Q1

REPORT INFORMATION
  Report Type: 
  Country: None (occurrence: None)
  Receive Date: 20060221
  Receipt Date: 20060221
  Transmission Date: 20060701
  Serious: Yes (Other)
  Sender: FDA-Public Use
  Company Number: None

PATIENT
  Age: 57 Year
  Sex: Female

DRUGS (2)
  1. VICODIN [Suspect]
     Indication: SCIATICA
  2. DEMEROL [Suspect]
     Indication: SCIATICA

REACTIONS (2)
  - DRUG INEFFECTIVE [None]
  - NAUSEA [None]
